FAERS Safety Report 25455214 (Version 1)
Quarter: 2025Q2

REPORT INFORMATION
  Report Type: Spontaneous
  Country: FR (occurrence: FR)
  Receive Date: 20250619
  Receipt Date: 20250619
  Transmission Date: 20250716
  Serious: Yes (Hospitalization)
  Sender: CHEPLAPHARM
  Company Number: None

PATIENT
  Age: 79 Year
  Sex: Female
  Weight: 54.299 kg

DRUGS (24)
  1. QUETIAPINE [Suspect]
     Active Substance: QUETIAPINE
     Indication: Mental disorder
     Dates: start: 202407
  2. QUETIAPINE [Suspect]
     Active Substance: QUETIAPINE
     Indication: Persecutory delusion
     Dates: start: 202407
  3. QUETIAPINE [Suspect]
     Active Substance: QUETIAPINE
     Indication: Hallucination
     Dates: start: 202407
  4. QUETIAPINE [Suspect]
     Active Substance: QUETIAPINE
     Indication: Mental disorder
     Dosage: DAILY DOSE: 50 MILLIGRAM
     Route: 048
     Dates: start: 20240808, end: 20250513
  5. QUETIAPINE [Suspect]
     Active Substance: QUETIAPINE
     Indication: Persecutory delusion
     Dosage: DAILY DOSE: 50 MILLIGRAM
     Route: 048
     Dates: start: 20240808, end: 20250513
  6. QUETIAPINE [Suspect]
     Active Substance: QUETIAPINE
     Indication: Hallucination
     Dosage: DAILY DOSE: 50 MILLIGRAM
     Route: 048
     Dates: start: 20240808, end: 20250513
  7. QUETIAPINE [Suspect]
     Active Substance: QUETIAPINE
     Indication: Mental disorder
     Dosage: DAILY DOSE: 100 MILLIGRAM
     Route: 048
     Dates: start: 20250514, end: 20250521
  8. QUETIAPINE [Suspect]
     Active Substance: QUETIAPINE
     Indication: Persecutory delusion
     Dosage: DAILY DOSE: 100 MILLIGRAM
     Route: 048
     Dates: start: 20250514, end: 20250521
  9. QUETIAPINE [Suspect]
     Active Substance: QUETIAPINE
     Indication: Hallucination
     Dosage: DAILY DOSE: 100 MILLIGRAM
     Route: 048
     Dates: start: 20250514, end: 20250521
  10. QUETIAPINE [Suspect]
     Active Substance: QUETIAPINE
     Indication: Mental disorder
     Dosage: DAILY DOSE: 150 MILLIGRAM
     Route: 048
     Dates: start: 20250522, end: 20250525
  11. QUETIAPINE [Suspect]
     Active Substance: QUETIAPINE
     Indication: Persecutory delusion
     Dosage: DAILY DOSE: 150 MILLIGRAM
     Route: 048
     Dates: start: 20250522, end: 20250525
  12. QUETIAPINE [Suspect]
     Active Substance: QUETIAPINE
     Indication: Hallucination
     Dosage: DAILY DOSE: 150 MILLIGRAM
     Route: 048
     Dates: start: 20250522, end: 20250525
  13. QUETIAPINE [Suspect]
     Active Substance: QUETIAPINE
     Indication: Mental disorder
     Dosage: DAILY DOSE: 100 MILLIGRAM
     Route: 048
     Dates: start: 20250526
  14. QUETIAPINE [Suspect]
     Active Substance: QUETIAPINE
     Indication: Persecutory delusion
     Dosage: DAILY DOSE: 100 MILLIGRAM
     Route: 048
     Dates: start: 20250526
  15. QUETIAPINE [Suspect]
     Active Substance: QUETIAPINE
     Indication: Hallucination
     Dosage: DAILY DOSE: 100 MILLIGRAM
     Route: 048
     Dates: start: 20250526
  16. CYAMEMAZINE [Suspect]
     Active Substance: CYAMEMAZINE
     Indication: Drug intolerance
  17. INSULIN GLARGINE [Concomitant]
     Active Substance: INSULIN GLARGINE
     Dosage: IN THE MORNING?DAILY DOSE: 8 IU (INTERNATIONAL UNIT)
  18. CINACALCET [Concomitant]
     Active Substance: CINACALCET
  19. MELATONIN [Concomitant]
     Active Substance: MELATONIN
     Dosage: AT BEDTIME?DAILY DOSE: 2 MILLIGRAM
  20. CETIRIZINE [Concomitant]
     Active Substance: CETIRIZINE HYDROCHLORIDE
     Dosage: 1 TABLET IN THE EVENING?DAILY DOSE: 1 DOSAGE FORM
  21. POLYETHYLENE GLYCOLS [Concomitant]
     Active Substance: POLYETHYLENE GLYCOLS
  22. ACETAMINOPHEN [Concomitant]
     Active Substance: ACETAMINOPHEN
  23. CHOLECALCIFEROL [Concomitant]
     Active Substance: CHOLECALCIFEROL
     Dosage: 1 AMP EVERY MONTH
  24. ECONAZOLE [Concomitant]
     Active Substance: ECONAZOLE

REACTIONS (2)
  - Pancytopenia [Recovering/Resolving]
  - Hypoglycaemia [Unknown]

NARRATIVE: CASE EVENT DATE: 20250526
